FAERS Safety Report 19928046 (Version 2)
Quarter: 2021Q4

REPORT INFORMATION
  Report Type: Report from Study
  Country: US (occurrence: None)
  Receive Date: 20211007
  Receipt Date: 20211130
  Transmission Date: 20220303
  Serious: Yes (Hospitalization, Other)
  Sender: FDA-Public Use
  Company Number: US-MERCK HEALTHCARE KGAA-9270122

PATIENT
  Sex: Female

DRUGS (4)
  1. REBIF [Suspect]
     Active Substance: INTERFERON BETA-1A
     Indication: Multiple sclerosis
     Route: 058
     Dates: start: 20180815, end: 20190115
  2. REBIF [Suspect]
     Active Substance: INTERFERON BETA-1A
     Route: 058
     Dates: start: 20190605, end: 20200615
  3. REBIF [Suspect]
     Active Substance: INTERFERON BETA-1A
     Route: 058
     Dates: start: 20210121, end: 2021
  4. COVID-19 VACCINE [Concomitant]
     Indication: COVID-19 immunisation

REACTIONS (5)
  - Sepsis [Unknown]
  - Loss of consciousness [Recovering/Resolving]
  - Confusional state [Unknown]
  - Memory impairment [Unknown]
  - Product administration interrupted [Unknown]
